FAERS Safety Report 23685486 (Version 1)
Quarter: 2024Q1

REPORT INFORMATION
  Report Type: Spontaneous
  Country: IT (occurrence: IT)
  Receive Date: 20240329
  Receipt Date: 20240329
  Transmission Date: 20240409
  Serious: Yes (Other)
  Sender: FDA-Public Use
  Company Number: IT-BRISTOL-MYERS SQUIBB COMPANY-2024-045822

PATIENT
  Sex: Male

DRUGS (2)
  1. LUSPATERCEPT [Suspect]
     Active Substance: LUSPATERCEPT
     Indication: Myelodysplastic syndrome
  2. DEFERASIROX [Concomitant]
     Active Substance: DEFERASIROX
     Indication: Myelodysplastic syndrome

REACTIONS (2)
  - Musculoskeletal toxicity [Unknown]
  - Hepatotoxicity [Unknown]
